FAERS Safety Report 8294601-0 (Version None)
Quarter: 2012Q2

REPORT INFORMATION
  Report Type: 
  Country: None (occurrence: None)
  Receive Date: 20120418
  Receipt Date: 20120410
  Transmission Date: 20120825
  Serious: Yes (Hospitalization)
  Sender: FDA-Public Use
  Company Number: US-ACTELION-A-NJ2012-63623

PATIENT

DRUGS (5)
  1. TRACLEER [Suspect]
     Indication: PULMONARY ARTERIAL HYPERTENSION
     Dosage: 125 MG, BID
     Route: 048
     Dates: start: 20080101
  2. ADCIRCA [Concomitant]
  3. COUMADIN [Concomitant]
  4. TRACLEER [Suspect]
     Dosage: UNK
     Route: 048
     Dates: start: 20050525, end: 20080101
  5. REMODULIN [Concomitant]

REACTIONS (3)
  - PYREXIA [None]
  - CHILLS [None]
  - UPPER RESPIRATORY TRACT INFECTION [None]
